FAERS Safety Report 13948732 (Version 1)
Quarter: 2017Q3

REPORT INFORMATION
  Report Type: Spontaneous
  Country: GB (occurrence: GB)
  Receive Date: 20170908
  Receipt Date: 20170908
  Transmission Date: 20171128
  Serious: Yes (Hospitalization, Other)
  Sender: FDA-Public Use
  Company Number: GB-BAYER-2017-165906

PATIENT
  Age: 84 Year
  Sex: Male

DRUGS (9)
  1. ALENDRONATE SODIUM. [Concomitant]
     Active Substance: ALENDRONATE SODIUM
     Dosage: UNK
  2. FUROSEMIDE. [Concomitant]
     Active Substance: FUROSEMIDE
  3. HYDROXOCOBALAMIN [Concomitant]
     Active Substance: HYDROXOCOBALAMIN
  4. PROPANTHELINE BROMIDE. [Concomitant]
     Active Substance: PROPANTHELINE BROMIDE
     Dosage: UNK
  5. PYRIDOSTIGMINE BROMIDE. [Concomitant]
     Active Substance: PYRIDOSTIGMINE BROMIDE
  6. ACETYLSALICYLIC ACID({=100 MG) [Suspect]
     Active Substance: ASPIRIN
     Dosage: 75 MG, QD
     Route: 048
     Dates: end: 20170715
  7. TAMSULOSIN [Concomitant]
     Active Substance: TAMSULOSIN
  8. PREDNISOLONE. [Suspect]
     Active Substance: PREDNISOLONE
     Indication: MYASTHENIA GRAVIS
     Dosage: 50 MG, QD
     Route: 048
  9. OMEPRAZOLE. [Concomitant]
     Active Substance: OMEPRAZOLE

REACTIONS (4)
  - Melaena [Unknown]
  - Circulatory collapse [Unknown]
  - Upper gastrointestinal haemorrhage [Recovering/Resolving]
  - Dizziness [Unknown]

NARRATIVE: CASE EVENT DATE: 20170814
